APPROVED DRUG PRODUCT: ALFUZOSIN HYDROCHLORIDE
Active Ingredient: ALFUZOSIN HYDROCHLORIDE
Strength: 10MG
Dosage Form/Route: TABLET, EXTENDED RELEASE;ORAL
Application: A079056 | Product #001
Applicant: CHARTWELL RX SCIENCES LLC
Approved: Jul 18, 2011 | RLD: No | RS: No | Type: DISCN